FAERS Safety Report 7823665-0 (Version None)
Quarter: 2011Q4

REPORT INFORMATION
  Report Type: 
  Country: None (occurrence: None)
  Receive Date: 20111019
  Receipt Date: 20111019
  Transmission Date: 20120403
  Serious: Yes (Life-Threatening, Hospitalization)
  Sender: FDA-Public Use
  Company Number: None

PATIENT
  Age: 61 Year
  Sex: Male
  Weight: 133 kg

DRUGS (1)
  1. PRADAXA [Suspect]

REACTIONS (5)
  - ABDOMINAL PAIN [None]
  - MEDICATION ERROR [None]
  - POST PROCEDURAL HAEMORRHAGE [None]
  - THROMBOSIS [None]
  - WRONG TECHNIQUE IN DRUG USAGE PROCESS [None]
